FAERS Safety Report 8911343 (Version 1)
Quarter: 2012Q4

REPORT INFORMATION
  Report Type: 
  Country: US (occurrence: US)
  Receive Date: 20121115
  Receipt Date: 20121115
  Transmission Date: 20130627
  Serious: No
  Sender: FDA-Public Use
  Company Number: US-009507513-1210USA004616

PATIENT
  Age: 6 Year
  Sex: Female

DRUGS (3)
  1. CLARITIN CHEWABLE TABLETS [Suspect]
     Indication: SNEEZING
     Dosage: 10 mg, qd
     Route: 048
     Dates: start: 20120816
  2. CLARITIN CHEWABLE TABLETS [Suspect]
     Dosage: 10 mg, bid
     Route: 048
     Dates: start: 20120820
  3. RISPERDAL [Concomitant]
     Indication: PRODUCT USED FOR UNKNOWN INDICATION
     Dosage: UNK, Unknown

REACTIONS (1)
  - Accidental overdose [Recovering/Resolving]
